FAERS Safety Report 6357553-6 (Version None)
Quarter: 2009Q3

REPORT INFORMATION
  Report Type: 
  Country: None (occurrence: None)
  Receive Date: 20090916
  Receipt Date: 20090904
  Transmission Date: 20100115
  Serious: Yes (Hospitalization)
  Sender: FDA-Public Use
  Company Number: PHHY2009AU37979

PATIENT
  Sex: Female

DRUGS (1)
  1. CLOZARIL [Suspect]
     Dosage: 200 MG, UNK
     Dates: start: 20061121

REACTIONS (2)
  - MENTAL DISORDER [None]
  - REFUSAL OF TREATMENT BY PATIENT [None]
